FAERS Safety Report 7962384-7 (Version None)
Quarter: 2011Q4

REPORT INFORMATION
  Report Type: 
  Country: None (occurrence: None)
  Receive Date: 20111207
  Receipt Date: 20111130
  Transmission Date: 20120403
  Serious: Yes (Other)
  Sender: FDA-Public Use
  Company Number: DE-UCBSA-046820

PATIENT

DRUGS (1)
  1. CIMZIA [Suspect]

REACTIONS (1)
  - PARALYSIS [None]
